FAERS Safety Report 19985174 (Version 3)
Quarter: 2021Q4

REPORT INFORMATION
  Report Type: Spontaneous
  Country: AR (occurrence: AR)
  Receive Date: 20211022
  Receipt Date: 20211216
  Transmission Date: 20220303
  Serious: Yes (Other)
  Sender: FDA-Public Use
  Company Number: AR-NOVARTISPH-NVSC2021AR236678

PATIENT
  Age: 68 Year
  Sex: Male
  Weight: 122 kg

DRUGS (5)
  1. DIOVAN [Suspect]
     Active Substance: VALSARTAN
     Indication: Blood pressure increased
     Dosage: 1 DF, QD (STARTED SINCE 10 YEARS AGO)
     Route: 065
  2. DIOVAN [Suspect]
     Active Substance: VALSARTAN
     Indication: Hypertension
     Dosage: 25 MG
     Route: 065
  3. HYDROCHLOROTHIAZIDE\VALSARTAN [Suspect]
     Active Substance: HYDROCHLOROTHIAZIDE\VALSARTAN
     Indication: Product used for unknown indication
     Dosage: 320MG/25MG
     Route: 065
  4. CARVEDILOL PHOSPHATE [Concomitant]
     Active Substance: CARVEDILOL PHOSPHATE
     Indication: Product used for unknown indication
     Dosage: ONCE EVERY 6 MONTH
     Route: 065
  5. CARVEDILOL PHOSPHATE [Concomitant]
     Active Substance: CARVEDILOL PHOSPHATE
     Dosage: 40 MG
     Route: 065

REACTIONS (8)
  - Scleroderma [Recovering/Resolving]
  - Raynaud^s phenomenon [Recovering/Resolving]
  - Peripheral swelling [Unknown]
  - Erythema [Unknown]
  - Peripheral coldness [Unknown]
  - Type 2 diabetes mellitus [Unknown]
  - Overweight [Unknown]
  - Discomfort [Unknown]

NARRATIVE: CASE EVENT DATE: 20200801
